FAERS Safety Report 6752365-3 (Version None)
Quarter: 2010Q2

REPORT INFORMATION
  Report Type: 
  Country: None (occurrence: None)
  Receive Date: 20100602
  Receipt Date: 20100525
  Transmission Date: 20101027
  Serious: Yes (Death)
  Sender: FDA-Public Use
  Company Number: CO-GENENTECH-302319

PATIENT
  Sex: Female

DRUGS (2)
  1. MABTHERA [Suspect]
     Indication: NON-HODGKIN'S LYMPHOMA
     Dosage: 600 MG, Q21D
     Route: 042
     Dates: start: 20100210
  2. TRAMADOL [Concomitant]
     Indication: PAIN
     Dosage: 20 DF, PRN
     Route: 048

REACTIONS (1)
  - DISEASE PROGRESSION [None]
